FAERS Safety Report 8043611-7 (Version None)
Quarter: 2012Q1

REPORT INFORMATION
  Report Type: 
  Country: None (occurrence: None)
  Receive Date: 20120112
  Receipt Date: 20120103
  Transmission Date: 20120608
  Serious: Yes (Hospitalization)
  Sender: FDA-Public Use
  Company Number: IE-BAXTER-2012BH000478

PATIENT
  Age: 45 Year
  Sex: Male

DRUGS (2)
  1. PENICILLIN [Suspect]
     Indication: INFECTION
     Route: 042
     Dates: start: 20111219
  2. SODIUM CHLORIDE 0.9% IN PLASTIC CONTAINER [Suspect]
     Indication: SUBCUTANEOUS ABSCESS
     Route: 042
     Dates: start: 20111219

REACTIONS (2)
  - FATIGUE [None]
  - RASH [None]
